FAERS Safety Report 14613741 (Version 1)
Quarter: 2018Q1

REPORT INFORMATION
  Report Type: Spontaneous
  Country: FR (occurrence: FR)
  Receive Date: 20180308
  Receipt Date: 20180308
  Transmission Date: 20180509
  Serious: Yes (Other)
  Sender: FDA-Public Use
  Company Number: FR-MERCK KGAA-2043307

PATIENT
  Age: 45 Year
  Sex: Female

DRUGS (1)
  1. NOVOTHYROX [Suspect]
     Active Substance: LEVOTHYROXINE SODIUM
     Indication: PRODUCT USED FOR UNKNOWN INDICATION
     Dates: end: 2017

REACTIONS (14)
  - Hormone level abnormal [Recovering/Resolving]
  - Loss of personal independence in daily activities [Recovering/Resolving]
  - Insomnia [Recovering/Resolving]
  - Arthralgia [Recovering/Resolving]
  - Myalgia [Recovering/Resolving]
  - Depression [Recovering/Resolving]
  - Thyroxine free increased [None]
  - Irritability [Recovering/Resolving]
  - Fatigue [Recovering/Resolving]
  - Abnormal behaviour [Recovering/Resolving]
  - Disability [Recovering/Resolving]
  - Migraine [Recovering/Resolving]
  - Loss of libido [Recovering/Resolving]
  - Emotional disorder [Recovering/Resolving]
